FAERS Safety Report 11979783 (Version 3)
Quarter: 2016Q1

REPORT INFORMATION
  Report Type: Report from Study
  Country: US (occurrence: US)
  Receive Date: 20160129
  Receipt Date: 20160202
  Transmission Date: 20160526
  Serious: No
  Sender: FDA-Public Use
  Company Number: PHEH2015US008709

PATIENT
  Age: 40 Year
  Sex: Female
  Weight: 61.22 kg

DRUGS (1)
  1. GILENYA [Suspect]
     Active Substance: FINGOLIMOD HYDROCHLORIDE
     Indication: MULTIPLE SCLEROSIS
     Dosage: 0.5 MG, QD
     Route: 048
     Dates: start: 20150501

REACTIONS (4)
  - Feeling abnormal [Recovering/Resolving]
  - Heart rate decreased [Recovering/Resolving]
  - Palpitations [Unknown]
  - Urinary tract infection [Not Recovered/Not Resolved]

NARRATIVE: CASE EVENT DATE: 20150501
